FAERS Safety Report 5202353-3 (Version None)
Quarter: 2006Q4

REPORT INFORMATION
  Report Type: 
  Country: None (occurrence: None)
  Receive Date: 20061012
  Receipt Date: 20050725
  Transmission Date: 20070319
  Serious: Yes (Other)
  Sender: FDA-Public Use
  Company Number: 2005S1000140

PATIENT
  Age: 58 Year
  Sex: Male

DRUGS (1)
  1. CUBICIN [Suspect]
     Indication: STAPHYLOCOCCAL OSTEOMYELITIS
     Dosage: 4 MG/KG; Q24H; IV
     Route: 042
     Dates: start: 20050101

REACTIONS (2)
  - ALVEOLITIS ALLERGIC [None]
  - DYSPNOEA [None]
